FAERS Safety Report 5884664-1 (Version None)
Quarter: 2008Q3

REPORT INFORMATION
  Report Type: 
  Country: None (occurrence: None)
  Receive Date: 20080916
  Receipt Date: 20080912
  Transmission Date: 20090109
  Serious: Yes (Hospitalization)
  Sender: FDA-Public Use
  Company Number: DE-BRISTOL-MYERS SQUIBB COMPANY-14316780

PATIENT
  Age: 65 Year
  Sex: Female

DRUGS (1)
  1. COAPROVEL TABS 150MG/12.5MG [Suspect]
     Indication: HYPERTENSION
     Dosage: 1 DOSAGEFORM = 150/12.5MG; THERAPY DURATION: 7YEARS 49WEEKS; TIME TO ONSET: 7 YEARS 48WEEKS.
     Route: 048
     Dates: start: 20000425, end: 20080403

REACTIONS (2)
  - HYPERTENSIVE CRISIS [None]
  - HYPOKALAEMIA [None]
